FAERS Safety Report 5157158-9 (Version None)
Quarter: 2006Q4

REPORT INFORMATION
  Report Type: 
  Country: None (occurrence: None)
  Receive Date: 20061127
  Receipt Date: 20061030
  Transmission Date: 20070319
  Serious: Yes (Other)
  Sender: FDA-Public Use
  Company Number: PHBS2006IT17146

PATIENT
  Age: 60 Year
  Sex: Female

DRUGS (1)
  1. ESTROGENS SOL/INJ [Suspect]
     Indication: HORMONE REPLACEMENT THERAPY
     Route: 062

REACTIONS (4)
  - ERYTHEMA [None]
  - NON-CARDIAC CHEST PAIN [None]
  - PAIN OF SKIN [None]
  - PHLEBITIS SUPERFICIAL [None]
